FAERS Safety Report 21247341 (Version 1)
Quarter: 2022Q3

REPORT INFORMATION
  Report Type: Report from Study
  Country: CL (occurrence: CL)
  Receive Date: 20220824
  Receipt Date: 20220824
  Transmission Date: 20221026
  Serious: Yes (Other)
  Sender: FDA-Public Use
  Company Number: CL-ABBVIE-21K-034-4124615-00

PATIENT
  Age: 45 Year
  Sex: Female

DRUGS (1)
  1. HUMIRA [Suspect]
     Active Substance: ADALIMUMAB
     Indication: Rheumatoid arthritis
     Route: 058
     Dates: start: 20171030

REACTIONS (4)
  - Meniscus injury [Recovering/Resolving]
  - Synovial cyst [Not Recovered/Not Resolved]
  - Inflammation [Unknown]
  - Arthritis [Unknown]

NARRATIVE: CASE EVENT DATE: 20211013
